FAERS Safety Report 7993495-8 (Version None)
Quarter: 2011Q4

REPORT INFORMATION
  Report Type: 
  Country: None (occurrence: None)
  Receive Date: 20111219
  Receipt Date: 20111208
  Transmission Date: 20120403
  Serious: Yes (Other)
  Sender: FDA-Public Use
  Company Number: US-ASTRAZENECA-2010SE32804

PATIENT
  Age: 67 Year
  Sex: Male

DRUGS (3)
  1. SEROQUEL [Suspect]
     Indication: FEELING OF RELAXATION
     Route: 048
  2. SEROQUEL [Suspect]
     Indication: SLEEP DISORDER
     Route: 048
  3. TRAZODONE HCL [Concomitant]

REACTIONS (3)
  - SUICIDAL BEHAVIOUR [None]
  - DRUG DOSE OMISSION [None]
  - EMPHYSEMA [None]
